FAERS Safety Report 10051703 (Version 3)
Quarter: 2015Q1

REPORT INFORMATION
  Report Type: Spontaneous
  Country: US (occurrence: US)
  Receive Date: 20140401
  Receipt Date: 20150313
  Transmission Date: 20150720
  Serious: Yes (Hospitalization)
  Sender: FDA-Public Use
  Company Number: US-PFIZER INC-2014090113

PATIENT
  Age: 74 Year
  Sex: Female
  Weight: 77.98 kg

DRUGS (9)
  1. LYRICA [Suspect]
     Active Substance: PREGABALIN
     Indication: NEUROPATHY PERIPHERAL
     Dosage: 150 MG, 2X/DAY
  2. LYRICA [Suspect]
     Active Substance: PREGABALIN
     Dosage: 150 MG, 1X/DAY
  3. ALLOPURINOL. [Concomitant]
     Active Substance: ALLOPURINOL
     Indication: GOUT
     Dosage: UNK
  4. LOSARTAN [Concomitant]
     Active Substance: LOSARTAN
     Indication: HYPERTENSION
     Dosage: UNK
  5. LYRICA [Suspect]
     Active Substance: PREGABALIN
     Dosage: 150 MG, DAILY
  6. VITAMIN B12 [Concomitant]
     Active Substance: CYANOCOBALAMIN
     Dosage: UNK
  7. LOSARTAN POTASSIUM. [Concomitant]
     Active Substance: LOSARTAN POTASSIUM
     Indication: HYPERTENSION
     Dosage: 100 MG, DAILY
  8. LEVOTHYROXINE [Concomitant]
     Active Substance: LEVOTHYROXINE
     Indication: THYROID DISORDER
     Dosage: UNK
  9. VITAMIN B6 [Concomitant]
     Active Substance: PYRIDOXINE HYDROCHLORIDE
     Dosage: UNK

REACTIONS (1)
  - Arthropathy [Unknown]

NARRATIVE: CASE EVENT DATE: 20140318
